FAERS Safety Report 8311112-4 (Version None)
Quarter: 2012Q2

REPORT INFORMATION
  Report Type: 
  Country: None (occurrence: None)
  Receive Date: 20120425
  Receipt Date: 20120419
  Transmission Date: 20120825
  Serious: Yes (Hospitalization)
  Sender: FDA-Public Use
  Company Number: CA-ABBOTT-12P-028-0927892-00

PATIENT
  Sex: Female
  Weight: 81.72 kg

DRUGS (2)
  1. HUMIRA [Suspect]
     Indication: CROHN'S DISEASE
     Route: 058
     Dates: start: 20100129, end: 20120318
  2. IMURAN [Concomitant]
     Indication: PRODUCT USED FOR UNKNOWN INDICATION

REACTIONS (10)
  - ABDOMINAL PAIN [None]
  - APHAGIA [None]
  - DIARRHOEA [None]
  - DRUG DOSE OMISSION [None]
  - DISCOMFORT [None]
  - WRONG TECHNIQUE IN DRUG USAGE PROCESS [None]
  - INFLUENZA [None]
  - ABDOMINAL PAIN UPPER [None]
  - INFLAMMATION [None]
  - CROHN'S DISEASE [None]
